FAERS Safety Report 9685130 (Version 1)
Quarter: 2013Q4

REPORT INFORMATION
  Report Type: Spontaneous
  Country: US (occurrence: None)
  Receive Date: 20131111
  Receipt Date: 20131111
  Transmission Date: 20140711
  Serious: Yes (Disabling)
  Sender: FDA-Public Use
  Company Number: None

PATIENT
  Age: 41 Year
  Sex: Female
  Weight: 90.72 kg

DRUGS (1)
  1. MIRENA [Suspect]
     Dates: start: 20070611, end: 20080611

REACTIONS (7)
  - Weight increased [None]
  - Breast tenderness [None]
  - Arthralgia [None]
  - Visual acuity reduced [None]
  - Haemorrhage [None]
  - Vaginal infection [None]
  - Breast cyst [None]
